FAERS Safety Report 11422962 (Version 1)
Quarter: 2015Q3

REPORT INFORMATION
  Report Type: Spontaneous
  Country: DE (occurrence: DE)
  Receive Date: 20150827
  Receipt Date: 20150827
  Transmission Date: 20151125
  Serious: Yes (Life-Threatening)
  Sender: FDA-Public Use
  Company Number: DE-WEST-WARD PHARMACEUTICALS CORP.-DE-H14001-15-01610

PATIENT
  Age: 68 Year
  Sex: Female
  Weight: 59 kg

DRUGS (19)
  1. 5-FLUOROURACIL [Suspect]
     Active Substance: FLUOROURACIL
     Route: 065
     Dates: start: 201410, end: 201412
  2. 5-FLUOROURACIL [Suspect]
     Active Substance: FLUOROURACIL
     Route: 065
     Dates: start: 201505, end: 201506
  3. OXALIPLATIN. [Suspect]
     Active Substance: OXALIPLATIN
     Route: 065
     Dates: start: 201402, end: 201408
  4. FOLINIC ACID/LEUCOVORIN [Suspect]
     Active Substance: LEUCOVORIN
     Route: 065
     Dates: start: 201402, end: 201408
  5. 5-FLUOROURACIL [Suspect]
     Active Substance: FLUOROURACIL
     Route: 065
     Dates: start: 201402, end: 201408
  6. FOLINIC ACID/LEUCOVORIN [Suspect]
     Active Substance: LEUCOVORIN
     Route: 065
     Dates: start: 201505, end: 201506
  7. 5-FLUOROURACIL [Suspect]
     Active Substance: FLUOROURACIL
     Route: 065
     Dates: start: 2010, end: 201010
  8. FOLINIC ACID/LEUCOVORIN [Suspect]
     Active Substance: LEUCOVORIN
     Indication: PRODUCT USED FOR UNKNOWN INDICATION
     Route: 065
     Dates: start: 200907, end: 200910
  9. FOLINIC ACID/LEUCOVORIN [Suspect]
     Active Substance: LEUCOVORIN
     Route: 065
     Dates: start: 201502, end: 201503
  10. 5-FLUOROURACIL [Suspect]
     Active Substance: FLUOROURACIL
     Indication: PRODUCT USED FOR UNKNOWN INDICATION
     Route: 065
     Dates: start: 200907, end: 200910
  11. FOLINIC ACID/LEUCOVORIN [Suspect]
     Active Substance: LEUCOVORIN
     Route: 065
     Dates: start: 201501, end: 2015
  12. 5-FLUOROURACIL [Suspect]
     Active Substance: FLUOROURACIL
     Route: 065
     Dates: start: 20150114, end: 2015
  13. FOLINIC ACID/LEUCOVORIN [Suspect]
     Active Substance: LEUCOVORIN
     Route: 065
     Dates: start: 2010, end: 201010
  14. 5-FLUOROURACIL [Suspect]
     Active Substance: FLUOROURACIL
     Route: 065
     Dates: start: 201502, end: 201503
  15. OXALIPLATIN. [Suspect]
     Active Substance: OXALIPLATIN
     Indication: PRODUCT USED FOR UNKNOWN INDICATION
     Route: 065
     Dates: start: 200907, end: 200910
  16. OXALIPLATIN. [Suspect]
     Active Substance: OXALIPLATIN
     Route: 065
     Dates: start: 2010, end: 201010
  17. IRINOTECAN [Suspect]
     Active Substance: IRINOTECAN
     Indication: PRODUCT USED FOR UNKNOWN INDICATION
     Route: 065
     Dates: start: 200907, end: 200910
  18. FOLINIC ACID/LEUCOVORIN [Suspect]
     Active Substance: LEUCOVORIN
     Route: 065
     Dates: start: 201410, end: 201412
  19. AVASTIN [Suspect]
     Active Substance: BEVACIZUMAB
     Indication: PRODUCT USED FOR UNKNOWN INDICATION
     Route: 065
     Dates: end: 201408

REACTIONS (2)
  - Acute lymphocytic leukaemia [Not Recovered/Not Resolved]
  - Philadelphia chromosome positive [Not Recovered/Not Resolved]

NARRATIVE: CASE EVENT DATE: 201507
